FAERS Safety Report 9890450 (Version 1)
Quarter: 2014Q1

REPORT INFORMATION
  Report Type: Spontaneous
  Country: US (occurrence: None)
  Receive Date: 20140210
  Receipt Date: 20140210
  Transmission Date: 20141002
  Serious: Yes (Other)
  Sender: FDA-Public Use
  Company Number: None

PATIENT
  Sex: Female
  Weight: 37.4 kg

DRUGS (1)
  1. LEVOTHYROXINE [Suspect]

REACTIONS (3)
  - Alopecia [None]
  - Rash [None]
  - Arthralgia [None]
